FAERS Safety Report 7567938-8 (Version None)
Quarter: 2011Q2

REPORT INFORMATION
  Report Type: 
  Country: None (occurrence: None)
  Receive Date: 20110623
  Receipt Date: 20110608
  Transmission Date: 20111010
  Serious: Yes (Hospitalization, Other)
  Sender: FDA-Public Use
  Company Number: US-AMGEN-USASP2011029796

PATIENT
  Age: 71 Year
  Sex: Male

DRUGS (2)
  1. ENBREL [Suspect]
     Indication: RHEUMATOID ARTHRITIS
     Dosage: 50 MG, QWK
     Dates: start: 20040903, end: 20090101
  2. RITUXAN [Concomitant]

REACTIONS (19)
  - VISUAL FIELD DEFECT [None]
  - FEELING OF BODY TEMPERATURE CHANGE [None]
  - GAIT DISTURBANCE [None]
  - IRITIS [None]
  - ARTHRALGIA [None]
  - RETINAL ARTERY OCCLUSION [None]
  - CHILLS [None]
  - FIBULA FRACTURE [None]
  - FALL [None]
  - INTERVERTEBRAL DISC PROTRUSION [None]
  - DYSPNOEA [None]
  - NERVE COMPRESSION [None]
  - THERAPEUTIC RESPONSE DECREASED [None]
  - DIAPHRAGMATIC PARALYSIS [None]
  - TIBIA FRACTURE [None]
  - BACK PAIN [None]
  - BALANCE DISORDER [None]
  - CORONARY ARTERY BYPASS [None]
  - BLINDNESS UNILATERAL [None]
